FAERS Safety Report 5973022-7 (Version None)
Quarter: 2008Q4

REPORT INFORMATION
  Report Type: 
  Country: None (occurrence: None)
  Receive Date: 20081126
  Receipt Date: 20080723
  Transmission Date: 20090506
  Serious: Yes (Other)
  Sender: FDA-Public Use
  Company Number: 2008BH006978

PATIENT
  Age: 29 Year
  Sex: Male

DRUGS (2)
  1. DIANEAL [Suspect]
     Indication: PERITONEAL DIALYSIS
     Dosage: IP
  2. DIANEAL [Suspect]
     Indication: PERITONEAL DIALYSIS
     Dosage: IP

REACTIONS (2)
  - DISCOMFORT [None]
  - PERITONEAL CLOUDY EFFLUENT [None]
